FAERS Safety Report 6348783-8 (Version None)
Quarter: 2009Q3

REPORT INFORMATION
  Report Type: 
  Country: None (occurrence: None)
  Receive Date: 20090911
  Receipt Date: 20070510
  Transmission Date: 20100115
  Serious: Yes (Other)
  Sender: FDA-Public Use
  Company Number: US-ASTRAZENECA-2006UW08317

PATIENT
  Age: 16272 Day
  Sex: Female
  Weight: 93.4 kg

DRUGS (24)
  1. SEROQUEL [Suspect]
     Indication: DEPRESSION
     Dosage: 50 MG-300 MG
     Route: 048
     Dates: start: 20010201
  2. SEROQUEL [Suspect]
     Indication: ANXIETY
     Dosage: 50 MG-300 MG
     Route: 048
     Dates: start: 20010201
  3. SEROQUEL [Suspect]
     Indication: SLEEP DISORDER
     Dosage: 50 MG-300 MG
     Route: 048
     Dates: start: 20010201
  4. SEROQUEL [Suspect]
     Dosage: APPROX. 100 MG TO 300 MG
     Route: 048
  5. SEROQUEL [Suspect]
     Dosage: APPROX. 100 MG TO 300 MG
     Route: 048
  6. SEROQUEL [Suspect]
     Dosage: APPROX. 100 MG TO 300 MG
     Route: 048
  7. ZYPREXA [Suspect]
     Dates: start: 20030423
  8. RISPERDAL [Suspect]
     Route: 048
     Dates: start: 20020321
  9. RISPERDAL [Suspect]
     Dosage: APPROX. 2 MG
  10. PROZAC [Concomitant]
     Dates: start: 20020312
  11. ASPIRIN [Concomitant]
     Dates: start: 19960401
  12. LIPITOR [Concomitant]
     Indication: HYPERCHOLESTEROLAEMIA
     Dosage: 20-40 MG
     Route: 048
     Dates: start: 20020312
  13. SERZONE [Concomitant]
     Route: 048
     Dates: start: 20020321
  14. RESTORIL [Concomitant]
     Route: 048
     Dates: start: 20020321
  15. ATIVAN [Concomitant]
     Route: 048
     Dates: start: 20020321
  16. EFFEXOR [Concomitant]
     Dosage: 75 MG-150 MG
     Dates: start: 20010201
  17. ZESTRIL [Concomitant]
     Route: 048
     Dates: start: 20020312
  18. NEXIUM [Concomitant]
     Route: 048
     Dates: start: 20020321
  19. TOPAMAX [Concomitant]
     Dates: start: 20041201
  20. COGENTIN [Concomitant]
     Dates: start: 20041201
  21. GLUCOPHAGE [Concomitant]
     Indication: DIABETES MELLITUS INADEQUATE CONTROL
     Dates: start: 20030101
  22. LEXAPRO [Concomitant]
     Dates: start: 20030402
  23. ABILIFY [Concomitant]
     Dates: start: 20030402
  24. LOPRESSOR [Concomitant]
     Indication: BLOOD PRESSURE
     Dosage: INCREASED TO 50 MG TWO TIMES A DAY
     Dates: start: 20030101

REACTIONS (6)
  - DIABETES MELLITUS [None]
  - DIABETES MELLITUS INADEQUATE CONTROL [None]
  - DIABETIC NEUROPATHY [None]
  - NEUROPATHY PERIPHERAL [None]
  - PAIN IN EXTREMITY [None]
  - TYPE 2 DIABETES MELLITUS [None]
